FAERS Safety Report 20123871 (Version 1)
Quarter: 2021Q4

REPORT INFORMATION
  Report Type: Spontaneous
  Country: CA (occurrence: CA)
  Receive Date: 20211129
  Receipt Date: 20211129
  Transmission Date: 20220303
  Serious: Yes (Other)
  Sender: FDA-Public Use
  Company Number: CA-APOTEX-2021AP045626

PATIENT
  Age: 43 Year
  Sex: Female

DRUGS (7)
  1. METHOTREXATE [Suspect]
     Active Substance: METHOTREXATE
     Indication: Rheumatoid arthritis
     Dosage: 40 MILLIGRAM, Q.WK.
     Route: 048
  2. METHOTREXATE [Suspect]
     Active Substance: METHOTREXATE
     Dosage: 25 MILLIGRAM, Q.WK.
     Route: 048
  3. LEFLUNOMIDE [Suspect]
     Active Substance: LEFLUNOMIDE
     Indication: Rheumatoid arthritis
     Dosage: 10 MILLIGRAM, QD
     Route: 048
  4. LEFLUNOMIDE [Suspect]
     Active Substance: LEFLUNOMIDE
     Dosage: 20 MILLIGRAM, QD (INCREASED FROM 10 MILLIGRAM TO 20 MILLIGRA AT MONTH 1 X 3 MONTHS)
     Route: 048
  5. FOLIC ACID [Suspect]
     Active Substance: FOLIC ACID
     Indication: Rheumatoid arthritis
     Dosage: 10 MILLIGRAM, Q.WK.
     Route: 048
  6. HYDROXYCHLOROQUINE [Suspect]
     Active Substance: HYDROXYCHLOROQUINE
     Indication: Rheumatoid arthritis
     Dosage: 2 DOSAGE FORM, QD (2 TABS PO OD X 1 YEAR)
     Route: 048
  7. PREDNISONE [Suspect]
     Active Substance: PREDNISONE
     Indication: Rheumatoid arthritis
     Dosage: 10 MILLIGRAM, QD (10 MG PO OD X 1 YEAR)
     Route: 048

REACTIONS (19)
  - Sjogren^s syndrome [Unknown]
  - Arthritis [Unknown]
  - Chest discomfort [Not Recovered/Not Resolved]
  - Conjunctival disorder [Unknown]
  - Joint stiffness [Unknown]
  - Joint swelling [Unknown]
  - Musculoskeletal stiffness [Unknown]
  - Mucosal disorder [Unknown]
  - Pain [Unknown]
  - Gait disturbance [Unknown]
  - Dizziness [Not Recovered/Not Resolved]
  - Fatigue [Unknown]
  - Erythema [Unknown]
  - Dyspnoea [Not Recovered/Not Resolved]
  - Cough [Unknown]
  - Arthralgia [Unknown]
  - Interstitial lung disease [Unknown]
  - Rash [Unknown]
  - Drug ineffective [Unknown]
